FAERS Safety Report 6170811-3 (Version None)
Quarter: 2009Q2

REPORT INFORMATION
  Report Type: 
  Country: None (occurrence: None)
  Receive Date: 20090427
  Receipt Date: 20090421
  Transmission Date: 20091009
  Serious: Yes (Death, Other)
  Sender: FDA-Public Use
  Company Number: JHP200900123

PATIENT
  Age: 10 Year
  Sex: Female

DRUGS (1)
  1. EPINEPHRINE [Suspect]
     Indication: RESUSCITATION
     Dosage: 10 MG, 8 DOSES

REACTIONS (2)
  - INCORRECT DOSE ADMINISTERED [None]
  - PNEUMOTHORAX [None]
